FAERS Safety Report 19426828 (Version 1)
Quarter: 2021Q2

REPORT INFORMATION
  Report Type: Spontaneous
  Country: US (occurrence: US)
  Receive Date: 20210617
  Receipt Date: 20210617
  Transmission Date: 20210717
  Serious: Yes (Other)
  Sender: FDA-Public Use
  Company Number: US-SA-2021SA198766

PATIENT
  Age: 61 Year
  Sex: Male

DRUGS (1)
  1. ZANTAC [Suspect]
     Active Substance: RANITIDINE HYDROCHLORIDE
     Indication: DYSPEPSIA
     Dosage: UNK
     Dates: start: 200601, end: 200801

REACTIONS (3)
  - Bladder cancer stage IV [Recovering/Resolving]
  - Neoplasm malignant [Unknown]
  - Prostate cancer stage II [Recovering/Resolving]

NARRATIVE: CASE EVENT DATE: 20080201
